FAERS Safety Report 11240799 (Version 2)
Quarter: 2015Q4

REPORT INFORMATION
  Report Type: Spontaneous
  Country: ES (occurrence: ES)
  Receive Date: 20150706
  Receipt Date: 20151005
  Transmission Date: 20160304
  Serious: Yes (Death, Hospitalization, Other)
  Sender: FDA-Public Use
  Company Number: ES-CELGENE-ESP-2015066619

PATIENT
  Age: 59 Year
  Sex: Male

DRUGS (2)
  1. ABRAXANE [Suspect]
     Active Substance: PACLITAXEL
     Indication: ADENOCARCINOMA PANCREAS
     Route: 065
  2. GEMCITABINE [Concomitant]
     Active Substance: GEMCITABINE\GEMCITABINE HYDROCHLORIDE
     Indication: ADENOCARCINOMA PANCREAS
     Route: 065

REACTIONS (9)
  - Macular oedema [Unknown]
  - Hepatic failure [Fatal]
  - Visual acuity reduced [Unknown]
  - Abdominal pain [Unknown]
  - Deep vein thrombosis [Unknown]
  - Metastases to soft tissue [Unknown]
  - Pain in extremity [Unknown]
  - Pain [Unknown]
  - Chorioretinitis [Unknown]

NARRATIVE: CASE EVENT DATE: 20150428
